FAERS Safety Report 5224727-7 (Version None)
Quarter: 2007Q1

REPORT INFORMATION
  Report Type: 
  Country: None (occurrence: None)
  Receive Date: 20070129
  Receipt Date: 20070129
  Transmission Date: 20070707
  Serious: Yes (Disabling)
  Sender: FDA-Public Use
  Company Number: None

PATIENT
  Age: 61 Year
  Sex: Male
  Weight: 63.5036 kg

DRUGS (1)
  1. NIACIN [Suspect]
     Indication: HIGH DENSITY LIPOPROTEIN DECREASED
     Dosage: 1500 MG DAILY ORALLY
     Route: 048
     Dates: start: 19970101

REACTIONS (3)
  - HEARING IMPAIRED [None]
  - TINNITUS [None]
  - VIIITH NERVE INJURY [None]
